FAERS Safety Report 12504876 (Version 1)
Quarter: 2016Q2

REPORT INFORMATION
  Report Type: Spontaneous
  Country: US (occurrence: US)
  Receive Date: 20160628
  Receipt Date: 20160628
  Transmission Date: 20160815
  Serious: Yes (Hospitalization)
  Sender: FDA-Public Use
  Company Number: US-SMITH AND NEPHEW, INC-2016SMT00454

PATIENT
  Age: 67 Year
  Sex: Male
  Weight: 73.47 kg

DRUGS (22)
  1. TIMOLOL. [Concomitant]
     Active Substance: TIMOLOL
     Dosage: UNK, 2X/DAY
  2. LOPRESSOR [Concomitant]
     Active Substance: METOPROLOL TARTRATE
     Dosage: 25 MG, 2X/DAY
  3. ALLOPURINOL. [Concomitant]
     Active Substance: ALLOPURINOL
     Dosage: 100 MG, 1X/DAY
  4. AMLODIPINE [Concomitant]
     Active Substance: AMLODIPINE BESYLATE
     Dosage: 2.5 MG, 1X/DAY
  5. FUROSEMIDE. [Concomitant]
     Active Substance: FUROSEMIDE
     Dosage: 40 MG TWICE DAILY, 4X/WEEK
  6. RENVELA [Concomitant]
     Active Substance: SEVELAMER CARBONATE
     Dosage: 1600 MG, 1X/DAY
  7. LEVOTHYROXINE SODIUM. [Concomitant]
     Active Substance: LEVOTHYROXINE SODIUM
     Dosage: 75 ?G, 1X/DAY
  8. LYRICA [Concomitant]
     Active Substance: PREGABALIN
     Dosage: 50 MG, 1X/DAY
  9. NEPHRO-VITE [Concomitant]
     Dosage: UNK, 1X/DAY
  10. RENVELA [Concomitant]
     Active Substance: SEVELAMER CARBONATE
     Dosage: UNK UNK, AS DIRECTED
  11. ZEPATIER [Concomitant]
     Active Substance: ELBASVIR\GRAZOPREVIR
     Dosage: UNK, 1X/DAY
     Dates: start: 20160517
  12. REGRANEX [Suspect]
     Active Substance: BECAPLERMIN
     Indication: DIABETIC FOOT
     Dosage: UNK, 1X/DAY
     Route: 061
     Dates: start: 20160517
  13. LISINOPRIL. [Concomitant]
     Active Substance: LISINOPRIL
     Dosage: 10 MG, 1X/DAY
  14. OMEPRAZOLE. [Concomitant]
     Active Substance: OMEPRAZOLE
     Dosage: 40 MG, 2X/DAY
  15. XANAX [Concomitant]
     Active Substance: ALPRAZOLAM
     Dosage: UNK, AS NEEDED
  16. VITAMIN D [Concomitant]
     Active Substance: CHOLECALCIFEROL
     Dosage: UNK, 1X/MONTH
  17. ASPIRIN. [Concomitant]
     Active Substance: ASPIRIN
     Dosage: 81 MG, 1X/DAY
  18. HYDRALAZINE HYDROCHLORIDE. [Concomitant]
     Active Substance: HYDRALAZINE HYDROCHLORIDE
     Dosage: 100 MG, 3X/DAY
  19. NOVOLOG [Concomitant]
     Active Substance: INSULIN ASPART
     Dosage: UNK, 3X/DAY
  20. LANTUS [Concomitant]
     Active Substance: INSULIN GLARGINE
     Dosage: 5 U, 1X/DAY
  21. RENVELA [Concomitant]
     Active Substance: SEVELAMER CARBONATE
     Dosage: 800 MG, 1X/DAY
  22. HYDROXYZINE [Concomitant]
     Active Substance: HYDROXYZINE\HYDROXYZINE HYDROCHLORIDE
     Dosage: UNK, AS NEEDED

REACTIONS (2)
  - Chest pain [Unknown]
  - Application site discolouration [Recovering/Resolving]

NARRATIVE: CASE EVENT DATE: 20160519
